FAERS Safety Report 7879097-2 (Version None)
Quarter: 2011Q4

REPORT INFORMATION
  Report Type: 
  Country: None (occurrence: None)
  Receive Date: 20111101
  Receipt Date: 20111027
  Transmission Date: 20120403
  Serious: Yes (Other)
  Sender: FDA-Public Use
  Company Number: PHEH2011US08027

PATIENT

DRUGS (1)
  1. ZOMETA [Suspect]

REACTIONS (1)
  - EYE INFLAMMATION [None]
